FAERS Safety Report 4600145-7 (Version None)
Quarter: 2005Q1

REPORT INFORMATION
  Report Type: 
  Country: None (occurrence: None)
  Receive Date: 20050303
  Receipt Date: 20050223
  Transmission Date: 20050727
  Serious: Yes (Hospitalization, Other)
  Sender: FDA-Public Use
  Company Number: 2005-00721

PATIENT
  Age: 56 Year
  Sex: Female

DRUGS (4)
  1. FLUOROURACIL [Suspect]
     Indication: BREAST CANCER
     Dosage: 987.5 MG, ALTERNATING 1 WK/3WK, INTRAVENOUS
     Route: 042
  2. CYCLOPHOSPHAMIDE [Suspect]
  3. METHOTREXATE [Suspect]
  4. TAMOXIFEN (TAMOXIFEN) [Concomitant]

REACTIONS (1)
  - PERIPHERAL ISCHAEMIA [None]
